FAERS Safety Report 15587888 (Version 2)
Quarter: 2019Q2

REPORT INFORMATION
  Report Type: Spontaneous
  Country: US (occurrence: US)
  Receive Date: 20181105
  Receipt Date: 20190531
  Transmission Date: 20190711
  Serious: No
  Sender: FDA-Public Use
  Company Number: US-PFIZER INC-2018444140

PATIENT
  Age: 70 Year
  Sex: Female
  Weight: 73 kg

DRUGS (11)
  1. GABAPENTIN. [Suspect]
     Active Substance: GABAPENTIN
     Indication: HEADACHE
     Dosage: 100 MG, 3X/DAY
     Dates: start: 2015, end: 2018
  2. LEVOTHYROXINE. [Concomitant]
     Active Substance: LEVOTHYROXINE
     Dosage: 50 UG, UNK (FRI, SAT, SUN)
     Dates: start: 201210
  3. NAPROXEN [NAPROXEN SODIUM] [Concomitant]
     Dosage: 500 MG, AS NEEDED (TWICE A DAY AS NEEDED)
     Dates: start: 2007
  4. FLUOCINONIDE. [Concomitant]
     Active Substance: FLUOCINONIDE
     Dosage: 0.05 %, AS NEEDED
  5. LEVOTHYROXINE. [Concomitant]
     Active Substance: LEVOTHYROXINE
     Dosage: 75 UG, UNK (MON-THURS)
     Dates: start: 201210
  6. ASPIRIN [ACETYLSALICYLIC ACID] [Concomitant]
     Active Substance: ASPIRIN
     Dosage: 81 MG, 1X/DAY
     Dates: start: 201109
  7. SALMON OIL [Concomitant]
     Active Substance: FISH OIL
     Dosage: 1000 MG, 2X/DAY
  8. VITAMIN D3 [Concomitant]
     Active Substance: CHOLECALCIFEROL
     Dosage: 2000 IU, 1X/DAY
     Dates: start: 2011
  9. CLARITIN [Concomitant]
     Active Substance: LORATADINE
     Dosage: 1 DF, 1X/DAY
     Dates: start: 2018
  10. TRIAMCINOLONE ACETONIDE. [Concomitant]
     Active Substance: TRIAMCINOLONE ACETONIDE
     Dosage: 0.1 %, AS NEEDED
  11. CALCIUM + VITAMIN D3 [Concomitant]
     Active Substance: CALCIUM CARBONATE\CHOLECALCIFEROL
     Dosage: UNK, 2X/DAY (CALCIUM (600 MG) WITH D3 (800 IU) )
     Dates: start: 2008

REACTIONS (6)
  - Somnolence [Unknown]
  - Drug ineffective [Unknown]
  - Fatigue [Unknown]
  - Product use in unapproved indication [Unknown]
  - Off label use [Unknown]
  - Vision blurred [Unknown]

NARRATIVE: CASE EVENT DATE: 2015
